FAERS Safety Report 12892207 (Version 1)
Quarter: 2016Q4

REPORT INFORMATION
  Report Type: Other
  Country: JP (occurrence: JP)
  Receive Date: 20161028
  Receipt Date: 20161028
  Transmission Date: 20170207
  Serious: Yes (Hospitalization)
  Sender: FDA-Public Use
  Company Number: JP-LUPIN PHARMACEUTICALS INC.-2016-04837

PATIENT
  Age: 13 Year
  Sex: Male

DRUGS (3)
  1. TOPIRAMATE. [Interacting]
     Active Substance: TOPIRAMATE
     Route: 065
  2. VALPROIC ACID. [Interacting]
     Active Substance: VALPROIC ACID
     Indication: EPILEPSY
     Route: 065
  3. TOPIRAMATE. [Suspect]
     Active Substance: TOPIRAMATE
     Indication: EPILEPSY
     Route: 065

REACTIONS (4)
  - Somnolence [Recovered/Resolved]
  - Drug interaction [Unknown]
  - Thrombocytopenia [Recovered/Resolved]
  - Hypothermia [Recovered/Resolved]
